FAERS Safety Report 15123784 (Version 1)
Quarter: 2018Q3

REPORT INFORMATION
  Report Type: Report from Study
  Country: IT (occurrence: IT)
  Receive Date: 20180710
  Receipt Date: 20180710
  Transmission Date: 20181010
  Serious: Yes (Hospitalization)
  Sender: FDA-Public Use
  Company Number: IT-TEVA-2018-IT-922201

PATIENT
  Age: 70 Year
  Sex: Female

DRUGS (6)
  1. LAROXYL 40 MG/ML GOCCE ORALI SOLUZIONE [Concomitant]
     Indication: DEPRESSION
     Route: 048
     Dates: start: 20150101
  2. METFORMINA RATIOPHARM ITALIA [Concomitant]
     Indication: DIABETES MELLITUS
     Route: 048
     Dates: start: 20180517
  3. SIMVASTATINA DOC GENERICI [Concomitant]
     Active Substance: SIMVASTATIN
     Indication: HYPERCHOLESTEROLAEMIA
     Route: 048
     Dates: start: 20100101
  4. ALPRAZOLAM. [Suspect]
     Active Substance: ALPRAZOLAM
     Indication: ANXIETY
     Route: 048
     Dates: start: 20180517, end: 20180517
  5. DAPAROX 33,1 MG/ML, GOCCE ORALI, SOLUZIONE [Concomitant]
     Indication: DEPRESSION
     Route: 048
     Dates: start: 20150101
  6. CARDIOASPIRIN 100 MG COMPRESSE GASTRORESISTENTI [Concomitant]
     Active Substance: ASPIRIN
     Indication: PROPHYLAXIS
     Route: 048
     Dates: start: 20100101

REACTIONS (3)
  - Sopor [Recovering/Resolving]
  - Aphasia [Recovering/Resolving]
  - Gait disturbance [Recovering/Resolving]

NARRATIVE: CASE EVENT DATE: 20180517
